FAERS Safety Report 15276680 (Version 1)
Quarter: 2018Q3

REPORT INFORMATION
  Report Type: Spontaneous
  Country: US (occurrence: US)
  Receive Date: 20180729
  Receipt Date: 20180729
  Transmission Date: 20181010
  Serious: No
  Sender: FDA-Public Use
  Company Number: None

PATIENT
  Age: 29 Year
  Sex: Female

DRUGS (1)
  1. DEPO?PROVERA [Suspect]
     Active Substance: MEDROXYPROGESTERONE ACETATE
     Indication: CONTRACEPTION
     Dosage: ?          OTHER FREQUENCY:ONCE EVERY 3MONTHS;?
     Route: 030
     Dates: start: 20140210, end: 20160201

REACTIONS (3)
  - Eczema [None]
  - Weight decreased [None]
  - Lethargy [None]

NARRATIVE: CASE EVENT DATE: 20160201
